FAERS Safety Report 5957406-9 (Version None)
Quarter: 2008Q4

REPORT INFORMATION
  Report Type: 
  Country: None (occurrence: None)
  Receive Date: 20081118
  Receipt Date: 20081112
  Transmission Date: 20090506
  Serious: Yes (Death)
  Sender: FDA-Public Use
  Company Number: US-MERCK-0811USA01750

PATIENT
  Sex: Female

DRUGS (1)
  1. INVANZ [Suspect]
     Route: 065
     Dates: start: 20081101

REACTIONS (1)
  - DEATH [None]
